FAERS Safety Report 11584961 (Version 2)
Quarter: 2015Q4

REPORT INFORMATION
  Report Type: Spontaneous
  Country: JP (occurrence: JP)
  Receive Date: 20151001
  Receipt Date: 20151105
  Transmission Date: 20160304
  Serious: Yes (Other)
  Sender: FDA-Public Use
  Company Number: JP-GLAXOSMITHKLINE-JP2015GSK139548

PATIENT
  Age: 52 Year
  Sex: Female

DRUGS (8)
  1. CAFFEINE AND SODIUM BENZOATE [Concomitant]
     Active Substance: CAFFEINE\SODIUM BENZOATE
  2. OMEGA-3-ACID ETHYL ESTERS. [Suspect]
     Active Substance: OMEGA-3-ACID ETHYL ESTERS
     Dosage: 2 G, QD
     Route: 048
     Dates: start: 20150208, end: 20150208
  3. OMEGA-3-ACID ETHYL ESTERS. [Suspect]
     Active Substance: OMEGA-3-ACID ETHYL ESTERS
     Indication: HYPERLIPIDAEMIA
     Dosage: 2 G, QD
     Route: 048
     Dates: start: 20141127, end: 20141215
  4. CERCINE [Concomitant]
     Active Substance: DIAZEPAM
  5. ERISPAN (FLUDIAZEPAM) [Concomitant]
  6. MYONAL [Concomitant]
     Active Substance: EPERISONE HYDROCHLORIDE
  7. ISOMENYL [Concomitant]
     Active Substance: ISOPROTERENOL HYDROCHLORIDE
  8. MIGSIS [Concomitant]
     Active Substance: LOMERIZINE HYDROCHLORIDE

REACTIONS (2)
  - Haemorrhagic erosive gastritis [Recovered/Resolved]
  - Nausea [Recovered/Resolved]

NARRATIVE: CASE EVENT DATE: 201412
